FAERS Safety Report 17144906 (Version 1)
Quarter: 2019Q4

REPORT INFORMATION
  Report Type: Spontaneous
  Country: IN (occurrence: IN)
  Receive Date: 20191212
  Receipt Date: 20191212
  Transmission Date: 20200122
  Serious: Yes (Other)
  Sender: FDA-Public Use
  Company Number: IN-CIPLA LTD.-2019IN08023

PATIENT

DRUGS (3)
  1. BUDECORT [Suspect]
     Active Substance: BUDESONIDE
     Dosage: 400 MICROGRAM, BID (2 DOSES OF 200 MCG FOR TWICE A DAY)
     Route: 048
     Dates: start: 201911
  2. DOXOFYLLINE [Concomitant]
     Active Substance: DOXOFYLLINE
     Indication: ASTHMA
     Dosage: 200 MILLIGRAM, QD, ONCE IN THE MORNING
     Route: 065
  3. BUDECORT [Suspect]
     Active Substance: BUDESONIDE
     Indication: ASTHMA
     Dosage: 400 MICROGRAM, BID (2 DOSES OF 200 MCG, BID) FOR ALMOST 8-10 YEARS
     Route: 048

REACTIONS (2)
  - Device issue [Unknown]
  - Drug ineffective [Not Recovered/Not Resolved]
